FAERS Safety Report 24684853 (Version 1)
Quarter: 2024Q4

REPORT INFORMATION
  Report Type: Report from Study
  Country: AT (occurrence: AT)
  Receive Date: 20241202
  Receipt Date: 20241202
  Transmission Date: 20250114
  Serious: Yes (Death, Other)
  Sender: ABBVIE
  Company Number: AT-ABBVIE-6028801

PATIENT
  Age: 71 Year
  Sex: Male

DRUGS (1)
  1. FOSCARBIDOPA\FOSLEVODOPA [Suspect]
     Active Substance: FOSCARBIDOPA\FOSLEVODOPA
     Indication: Parkinson^s disease
     Dosage: CR 0,43ML/H; CRHIGH 0,44ML/H; CRLOW 0,28ML/H; ED 0,25ML BLOCKING TIME 2H
     Route: 058
     Dates: start: 20240522

REACTIONS (1)
  - Death [Fatal]

NARRATIVE: CASE EVENT DATE: 20241120
